FAERS Safety Report 6996805-3 (Version None)
Quarter: 2010Q3

REPORT INFORMATION
  Report Type: 
  Country: None (occurrence: None)
  Receive Date: 20100918
  Receipt Date: 20090728
  Transmission Date: 20110219
  Serious: No
  Sender: FDA-Public Use
  Company Number: US-WYE-H10029409

PATIENT
  Sex: Female
  Weight: 57.2 kg

DRUGS (6)
  1. EFFEXOR XR [Suspect]
     Indication: MENOPAUSAL SYMPTOMS
     Dosage: UNKNOWN
     Route: 048
     Dates: start: 20090522
  2. FISH OIL, HYDROGENATED [Concomitant]
  3. ASCORBIC ACID [Concomitant]
  4. ERGOCALCIFEROL [Concomitant]
  5. MULTI-VITAMINS [Concomitant]
  6. CALCIUM [Concomitant]

REACTIONS (4)
  - BOWEL MOVEMENT IRREGULARITY [None]
  - BRUXISM [None]
  - INSOMNIA [None]
  - VOMITING [None]
